FAERS Safety Report 23526334 (Version 1)
Quarter: 2024Q1

REPORT INFORMATION
  Report Type: Spontaneous
  Country: US (occurrence: None)
  Receive Date: 20240214
  Receipt Date: 20240214
  Transmission Date: 20240409
  Serious: Yes (Other)
  Sender: FDA-Public Use
  Company Number: None

PATIENT
  Age: 60 Year
  Sex: Male

DRUGS (1)
  1. CIMZIA [Suspect]
     Active Substance: CERTOLIZUMAB PEGOL
     Indication: Ankylosing spondylitis
     Dosage: OTHER FREQUENCY : 400MG LOADING DOSE;?
     Route: 058
     Dates: start: 20240123

REACTIONS (2)
  - Cold sweat [None]
  - Heart rate increased [None]

NARRATIVE: CASE EVENT DATE: 20240123
